FAERS Safety Report 17824747 (Version 1)
Quarter: 2020Q2

REPORT INFORMATION
  Report Type: Spontaneous
  Country: CA (occurrence: CA)
  Receive Date: 20200526
  Receipt Date: 20200526
  Transmission Date: 20200714
  Serious: Yes (Other)
  Sender: FDA-Public Use
  Company Number: CA-TEVA-2020-CA-1239096

PATIENT
  Age: 78 Year
  Sex: Male
  Weight: 93 kg

DRUGS (4)
  1. ETOPOSIDE. [Suspect]
     Active Substance: ETOPOSIDE
     Indication: SMALL CELL LUNG CANCER LIMITED STAGE
     Route: 041
  2. LORAZEPAM. [Concomitant]
     Active Substance: LORAZEPAM
  3. ZOFRAN [ONDANSETRON [Concomitant]
     Route: 042
  4. DEXAMETHASONE SODIUM PHOSPHATE. [Concomitant]
     Active Substance: DEXAMETHASONE SODIUM PHOSPHATE

REACTIONS (6)
  - Choking sensation [Recovered/Resolved]
  - Malaise [Recovered/Resolved]
  - Gingival oedema [Recovered/Resolved]
  - Hyperhidrosis [Recovered/Resolved]
  - Chest discomfort [Recovered/Resolved]
  - Pruritus [Recovered/Resolved]
